FAERS Safety Report 4672849-1 (Version None)
Quarter: 2005Q2

REPORT INFORMATION
  Report Type: 
  Country: None (occurrence: None)
  Receive Date: 20050524
  Receipt Date: 20050511
  Transmission Date: 20051028
  Serious: Yes (Other)
  Sender: FDA-Public Use
  Company Number: PHEH2005US05432

PATIENT
  Sex: Male

DRUGS (3)
  1. ZOMETA [Suspect]
     Indication: MULTIPLE MYELOMA
     Dosage: 4 MG MONTHLY
  2. THALIDOMIDE [Suspect]
  3. DECADRON [Concomitant]

REACTIONS (2)
  - DRY MOUTH [None]
  - TOOTH DISORDER [None]
